FAERS Safety Report 7331446-X (Version None)
Quarter: 2011Q1

REPORT INFORMATION
  Report Type: 
  Country: None (occurrence: None)
  Receive Date: 20110228
  Receipt Date: 20110228
  Transmission Date: 20110831
  Serious: Yes (Death)
  Sender: FDA-Public Use
  Company Number: None

PATIENT
  Age: 81 Year
  Sex: Female
  Weight: 79.8331 kg

DRUGS (1)
  1. PRADAXA [Suspect]
     Indication: ATRIAL FIBRILLATION
     Dosage: 150 BID PO
     Route: 048
     Dates: start: 20101201, end: 20110201

REACTIONS (7)
  - RENAL FAILURE ACUTE [None]
  - COAGULOPATHY [None]
  - GASTROINTESTINAL HAEMORRHAGE [None]
  - INTERNATIONAL NORMALISED RATIO INCREASED [None]
  - CARDIOPULMONARY FAILURE [None]
  - ACUTE MYOCARDIAL INFARCTION [None]
  - HYPOTENSION [None]
